FAERS Safety Report 18981041 (Version 1)
Quarter: 2021Q1

REPORT INFORMATION
  Report Type: Spontaneous
  Country: US (occurrence: US)
  Receive Date: 20210305
  Receipt Date: 20210305
  Transmission Date: 20210420
  Serious: Yes (Hospitalization, Other)
  Sender: FDA-Public Use
  Company Number: None

PATIENT
  Age: 41 Year
  Sex: Male
  Weight: 88.45 kg

DRUGS (2)
  1. LIQUID METHADONE [Concomitant]
     Dates: start: 20150305, end: 20210305
  2. LIQUID METHADONE [Suspect]
     Active Substance: METHADONE HYDROCHLORIDE

REACTIONS (11)
  - Hepatic steatosis [None]
  - Rectal haemorrhage [None]
  - Fatigue [None]
  - Physical assault [None]
  - Chest pain [None]
  - Gastrointestinal disorder [None]
  - Dizziness [None]
  - Dyspnoea [None]
  - Headache [None]
  - Illness [None]
  - Constipation [None]

NARRATIVE: CASE EVENT DATE: 20210303
